FAERS Safety Report 7419357-2 (Version None)
Quarter: 2011Q2

REPORT INFORMATION
  Report Type: 
  Country: None (occurrence: None)
  Receive Date: 20110415
  Receipt Date: 20110406
  Transmission Date: 20111010
  Serious: Yes (Hospitalization)
  Sender: FDA-Public Use
  Company Number: US-MERCK-1101USA01049

PATIENT
  Age: 68 Year
  Sex: Female

DRUGS (1)
  1. FOSAMAX [Suspect]
     Route: 048
     Dates: start: 20060101, end: 20080101

REACTIONS (11)
  - LOW TURNOVER OSTEOPATHY [None]
  - FALL [None]
  - DIVERTICULUM [None]
  - UTERINE LEIOMYOMA [None]
  - LUMBAR SPINAL STENOSIS [None]
  - HYPERTENSION [None]
  - BLOOD CHOLESTEROL INCREASED [None]
  - GASTROOESOPHAGEAL REFLUX DISEASE [None]
  - SPONDYLOLISTHESIS [None]
  - FEMUR FRACTURE [None]
  - LUMBAR RADICULOPATHY [None]
